FAERS Safety Report 23940288 (Version 1)
Quarter: 2024Q2

REPORT INFORMATION
  Report Type: Spontaneous
  Country: GB (occurrence: GB)
  Receive Date: 20240605
  Receipt Date: 20240605
  Transmission Date: 20240715
  Serious: Yes (Other)
  Sender: FDA-Public Use
  Company Number: GB-MHRA-TPP41888578C10052925YC1716282129417

PATIENT
  Age: 78 Year
  Sex: Female
  Weight: 57 kg

DRUGS (8)
  1. AMLODIPINE [Suspect]
     Active Substance: AMLODIPINE BESYLATE
     Indication: Hypertension
     Dosage: 5 MILLIGRAM, ONCE A DAY
     Route: 065
     Dates: start: 20231204
  2. ATORVASTATIN [Concomitant]
     Active Substance: ATORVASTATIN
     Indication: Ill-defined disorder
     Dosage: 1 DOSAGE FORM AT NIGHT (HIGH INTENSITY STATIN)
     Route: 065
     Dates: start: 20220331
  3. FLUTICASONE FUROATE [Concomitant]
     Active Substance: FLUTICASONE FUROATE
     Indication: Ill-defined disorder
     Dosage: UNK USE TWO SPRAY IN EACH NOSTRIL, ONCE A DAY
     Route: 045
     Dates: start: 20240212
  4. CALCIAL D [Concomitant]
     Indication: Ill-defined disorder
     Dosage: 1 DOSAGE FORM, ONCE A DAY
     Route: 065
     Dates: start: 20230112
  5. BECLOMETHASONE DIPROPIONATE [Concomitant]
     Active Substance: BECLOMETHASONE DIPROPIONATE
     Indication: Ill-defined disorder
     Dosage: UNK INHALE TWO PUFFS, TWO TIMES A DAY
     Dates: start: 20240322
  6. FEXOFENADINE [Concomitant]
     Active Substance: FEXOFENADINE HYDROCHLORIDE
     Indication: Ill-defined disorder
     Dosage: 1 DOSAGE FORM, ONCE A DAY
     Route: 065
     Dates: start: 20240212
  7. OMEPRAZOLE [Concomitant]
     Active Substance: DONEPEZIL HYDROCHLORIDE\OMEPRAZOLE\OMEPRAZOLE MAGNESIUM
     Indication: Ill-defined disorder
     Dosage: 1 DOSAGE FORM, DAILY
     Route: 065
     Dates: start: 20200604
  8. TRIMETHOPRIM [Concomitant]
     Active Substance: TRIMETHOPRIM
     Indication: Ill-defined disorder
     Dosage: 1 DOSAGE FORM, TWO TIMES A DAY
     Route: 065
     Dates: start: 20240223

REACTIONS (2)
  - Madarosis [Unknown]
  - Angioedema [Recovering/Resolving]

NARRATIVE: CASE EVENT DATE: 20240521
